FAERS Safety Report 7554945 (Version 3)
Quarter: 2012Q4

REPORT INFORMATION
  Report Type: Report from Study
  Country: JP (occurrence: JP)
  Receive Date: 20100826
  Receipt Date: 20120911
  Transmission Date: 20130627
  Serious: Yes (Death, Life-Threatening, Other)
  Sender: FDA-Public Use
  Company Number: JP-GENZYME-THYM-1001786

PATIENT
  Age: 52 Year
  Sex: Female
  Weight: 43 kg

DRUGS (8)
  1. THYMOGLOBULIN [Suspect]
     Indication: APLASTIC ANAEMIA
     Dosage: 110 mg, qd
     Route: 042
     Dates: start: 20090924, end: 20090928
  2. PREDNISOLONE [Concomitant]
     Indication: PREMEDICATION
     Dosage: UNK
     Route: 065
     Dates: start: 20090924, end: 20100318
  3. PREDNISOLONE [Concomitant]
     Indication: APLASTIC ANAEMIA
  4. PENTAMIDINE ISETHIONATE [Concomitant]
     Indication: INFECTION PROPHYLAXIS
     Dosage: UNK
     Route: 065
     Dates: start: 20090923, end: 20100323
  5. CICLOSPORIN [Concomitant]
     Indication: APLASTIC ANAEMIA
     Dosage: UNK
     Route: 065
     Dates: start: 20090930, end: 20100316
  6. ENTECAVIR [Concomitant]
     Indication: ANTIVIRAL PROPHYLAXIS
     Dosage: UNK
     Route: 065
     Dates: start: 20090930, end: 20100321
  7. FLUCONAZOLE [Concomitant]
     Indication: INFECTION PROPHYLAXIS
     Dosage: UNK
     Route: 065
     Dates: start: 20090923, end: 20100323
  8. GARENOXACIN [Concomitant]
     Indication: INFECTION PROPHYLAXIS
     Dosage: UNK
     Route: 065
     Dates: start: 20090923, end: 20100323

REACTIONS (3)
  - Pseudomonal sepsis [Fatal]
  - Aplastic anaemia [Unknown]
  - Pneumonia [Recovered/Resolved]
